FAERS Safety Report 9045440 (Version 1)
Quarter: 2013Q1

REPORT INFORMATION
  Report Type: Report from Study
  Country: US (occurrence: US)
  Receive Date: 20130131
  Receipt Date: 20130131
  Transmission Date: 20140127
  Serious: No
  Sender: FDA-Public Use
  Company Number: US-ABBOTT-12P-163-0970008-00

PATIENT
  Age: 60 Year
  Sex: Female

DRUGS (15)
  1. HUMIRA [Suspect]
     Indication: RHEUMATOID ARTHRITIS
     Route: 058
     Dates: start: 20120817
  2. HUMIRA [Suspect]
     Indication: RHEUMATOID ARTHRITIS
     Route: 058
     Dates: start: 20121016
  3. GLUCOPHAGE [Concomitant]
     Indication: DIABETES MELLITUS
     Dosage: 1/2 TAB DAILY
  4. NORVASC [Concomitant]
     Indication: HYPERTENSION
  5. XANAX [Concomitant]
     Indication: ANXIETY
  6. XANAX [Concomitant]
     Indication: PANIC ATTACK
  7. ATENOLOL [Concomitant]
     Indication: HYPERTENSION
  8. SYNTHYROID [Concomitant]
     Indication: THYROIDECTOMY
  9. FOLIC ACID [Concomitant]
     Indication: PRODUCT USED FOR UNKNOWN INDICATION
  10. SPIRIVA [Concomitant]
     Indication: CHRONIC OBSTRUCTIVE PULMONARY DISEASE
     Dosage: DAILY
     Route: 055
  11. IBUPROFEN [Concomitant]
     Indication: PAIN
  12. NEXIUM [Concomitant]
     Indication: DYSPEPSIA
     Dosage: DAILY
  13. NEXIUM [Concomitant]
     Indication: GASTROOESOPHAGEAL REFLUX DISEASE
  14. OXYGEN [Concomitant]
     Indication: SLEEP APNOEA SYNDROME
     Dosage: AT NIGHT
  15. PERCOCET [Concomitant]
     Indication: PAIN
     Dosage: UP TO 3 PILLS A DAY

REACTIONS (6)
  - Anxiety [Recovering/Resolving]
  - Injection site pain [Recovering/Resolving]
  - Injection site pain [Unknown]
  - Injection site bruising [Unknown]
  - Kidney infection [Unknown]
  - Micturition urgency [Not Recovered/Not Resolved]
